FAERS Safety Report 13543943 (Version 1)
Quarter: 2017Q2

REPORT INFORMATION
  Report Type: Spontaneous
  Country: US (occurrence: US)
  Receive Date: 20170515
  Receipt Date: 20170515
  Transmission Date: 20170830
  Serious: Yes (Hospitalization)
  Sender: FDA-Public Use
  Company Number: US-TEVA-695690USA

PATIENT
  Age: 79 Year
  Sex: Male
  Weight: 77.18 kg

DRUGS (6)
  1. ASPIRIN. [Concomitant]
     Active Substance: ASPIRIN
  2. DOXYCYCLINE MONO [Suspect]
     Active Substance: DOXYCYCLINE
     Indication: LYME DISEASE
  3. CEFALEXIN [Suspect]
     Active Substance: CEPHALEXIN
     Indication: LYME DISEASE
     Dates: start: 20160725
  4. VIAGRA [Concomitant]
     Active Substance: SILDENAFIL CITRATE
     Indication: PROSTATIC DISORDER
     Dosage: ONE AT A TIME
     Route: 048
  5. NORVASC [Concomitant]
     Active Substance: AMLODIPINE BESYLATE
     Indication: BLOOD PRESSURE ABNORMAL
  6. AMLODIPINE [Concomitant]
     Active Substance: AMLODIPINE BESYLATE
     Indication: BLOOD PRESSURE ABNORMAL

REACTIONS (4)
  - Product use in unapproved indication [Unknown]
  - Hospitalisation [Unknown]
  - Drug ineffective [Unknown]
  - Gait disturbance [Unknown]

NARRATIVE: CASE EVENT DATE: 20160816
